FAERS Safety Report 19984460 (Version 2)
Quarter: 2021Q4

REPORT INFORMATION
  Report Type: Spontaneous
  Country: US (occurrence: US)
  Receive Date: 20211021
  Receipt Date: 20211028
  Transmission Date: 20220303
  Serious: Yes (Hospitalization)
  Sender: FDA-Public Use
  Company Number: US-TEVA-2021-US-1966676

PATIENT
  Age: 10 Month
  Sex: Male

DRUGS (2)
  1. VIGABATRIN [Suspect]
     Active Substance: VIGABATRIN
     Indication: Tuberous sclerosis complex
     Dosage: UNKNOWN INITIAL DOSE
     Route: 065
  2. VIGABATRIN [Suspect]
     Active Substance: VIGABATRIN
     Indication: Tuberous sclerosis complex
     Dosage: 150 MG/KG DAILY; DOSE WAS PROGRESSIVELY INCREASED TO 150 MG/KG/DAY
     Route: 065

REACTIONS (1)
  - Magnetic resonance imaging head abnormal [Recovered/Resolved]
